FAERS Safety Report 20563406 (Version 1)
Quarter: 2022Q1

REPORT INFORMATION
  Report Type: Spontaneous
  Country: US (occurrence: None)
  Receive Date: 20220308
  Receipt Date: 20220308
  Transmission Date: 20220424
  Serious: No
  Sender: FDA-Public Use
  Company Number: 2022A033598

PATIENT
  Age: 6796 Day
  Sex: Female
  Weight: 54.4 kg

DRUGS (10)
  1. FASENRA [Suspect]
     Active Substance: BENRALIZUMAB
     Indication: Asthma
     Dosage: EVERY 4 WEEKS AND THEN AFTER THE 3RD DOSE IT WILL BE EVERY 8 WEEKS
     Route: 058
     Dates: start: 20211222, end: 20220119
  2. FASENRA [Suspect]
     Active Substance: BENRALIZUMAB
     Indication: Asthma
     Route: 058
     Dates: start: 20220119
  3. XHANCE [Concomitant]
     Active Substance: FLUTICASONE PROPIONATE
     Route: 065
  4. RYVENT [Concomitant]
     Active Substance: CARBINOXAMINE MALEATE
  5. ALBUTEROL [Concomitant]
     Active Substance: ALBUTEROL
  6. ALLEGRA [Concomitant]
     Active Substance: FEXOFENADINE HYDROCHLORIDE
  7. AZELASTINE [Concomitant]
     Active Substance: AZELASTINE
     Route: 065
  8. SPIRIVA [Concomitant]
     Active Substance: TIOTROPIUM BROMIDE MONOHYDRATE
  9. IPRATROPIUM BROMIDE [Concomitant]
     Active Substance: IPRATROPIUM BROMIDE
     Route: 065
  10. BREO ELLIPTA [Concomitant]
     Active Substance: FLUTICASONE FUROATE\VILANTEROL TRIFENATATE

REACTIONS (3)
  - Injection site urticaria [Recovered/Resolved]
  - Injection site pain [Unknown]
  - Drug ineffective [Not Recovered/Not Resolved]

NARRATIVE: CASE EVENT DATE: 20220119
